FAERS Safety Report 23289995 (Version 1)
Quarter: 2023Q4

REPORT INFORMATION
  Report Type: Spontaneous
  Country: CN (occurrence: CN)
  Receive Date: 20231212
  Receipt Date: 20231212
  Transmission Date: 20240110
  Serious: Yes (Disabling, Other)
  Sender: FDA-Public Use
  Company Number: CN-ABBVIE-5531682

PATIENT
  Age: 50 Year
  Sex: Female
  Weight: 55 kg

DRUGS (3)
  1. VENETOCLAX [Suspect]
     Active Substance: VENETOCLAX
     Indication: Chronic myelomonocytic leukaemia
     Dosage: 400 MILLIGRAM?QD
     Route: 048
     Dates: start: 20231121, end: 20231204
  2. AZACITIDINE [Suspect]
     Active Substance: AZACITIDINE
     Indication: Chronic myelomonocytic leukaemia
     Dosage: 100 MILLIGRAM?AZACITIDINE 100 MG QD IH
     Route: 065
     Dates: start: 20231121, end: 20231127
  3. STERILE WATER [Concomitant]
     Active Substance: WATER
     Indication: Chronic myelomonocytic leukaemia
     Dosage: 4 ML?4 ML QD IH
     Dates: start: 20231121, end: 20231127

REACTIONS (3)
  - Myelosuppression [Unknown]
  - White blood cell count decreased [Unknown]
  - Granulocyte count decreased [Unknown]

NARRATIVE: CASE EVENT DATE: 20231205
